FAERS Safety Report 24546383 (Version 2)
Quarter: 2024Q4

REPORT INFORMATION
  Report Type: Spontaneous
  Country: US (occurrence: US)
  Receive Date: 20241024
  Receipt Date: 20241113
  Transmission Date: 20250115
  Serious: No
  Sender: CALLIDITAS THERAPEUTICS AB
  Company Number: US-Calliditas-2024CAL02382

PATIENT
  Age: 79 Year
  Sex: Male

DRUGS (14)
  1. TARPEYO [Suspect]
     Active Substance: BUDESONIDE
     Indication: Product used for unknown indication
     Route: 048
     Dates: start: 202307
  2. ALLOPURINOL [Concomitant]
     Active Substance: ALLOPURINOL
  3. LOSARTAN [Concomitant]
     Active Substance: LOSARTAN
  4. ATORVASTATIN [Concomitant]
     Active Substance: ATORVASTATIN
  5. FERROUS GLUCONATE [Concomitant]
     Active Substance: FERROUS GLUCONATE
  6. FINASTERIDE [Concomitant]
     Active Substance: FINASTERIDE
  7. METOPROLOL [Concomitant]
     Active Substance: METOPROLOL
  8. MYFORTIC [Concomitant]
     Active Substance: MYCOPHENOLATE SODIUM
  9. OMEPRAZOLE [Concomitant]
     Active Substance: OMEPRAZOLE
  10. SERTRALINE [Concomitant]
     Active Substance: SERTRALINE HYDROCHLORIDE
  11. ENVARSUS XR [Concomitant]
     Active Substance: TACROLIMUS
  12. MAGNESIUM [Concomitant]
     Active Substance: MAGNESIUM
  13. NIACINAMIDE [Concomitant]
     Active Substance: NIACINAMIDE
  14. FLOMAX [Concomitant]
     Active Substance: TAMSULOSIN HYDROCHLORIDE

REACTIONS (5)
  - Fatigue [Recovering/Resolving]
  - Balance disorder [Recovering/Resolving]
  - Flatulence [Recovering/Resolving]
  - Abdominal distension [Recovering/Resolving]
  - Prescribed underdose [Recovered/Resolved]

NARRATIVE: CASE EVENT DATE: 20230901
